FAERS Safety Report 5488086-7 (Version None)
Quarter: 2007Q4

REPORT INFORMATION
  Report Type: 
  Country: None (occurrence: None)
  Receive Date: 20071017
  Receipt Date: 20071008
  Transmission Date: 20080405
  Serious: Yes (Death, Hospitalization, Other)
  Sender: FDA-Public Use
  Company Number: US-BRISTOL-MYERS SQUIBB COMPANY-13933684

PATIENT
  Age: 65 Year
  Sex: Male

DRUGS (2)
  1. CYCLOPHOSPHAMIDE [Suspect]
  2. PREDNISOLONE [Suspect]

REACTIONS (2)
  - MYCOBACTERIAL INFECTION [None]
  - RESPIRATORY FAILURE [None]
